FAERS Safety Report 5443090-X (Version None)
Quarter: 2007Q3

REPORT INFORMATION
  Report Type: 
  Country: None (occurrence: None)
  Receive Date: 20070830
  Receipt Date: 20070817
  Transmission Date: 20080115
  Serious: No
  Sender: FDA-Public Use
  Company Number: 2007-162712-NL

PATIENT
  Age: 23 Year
  Sex: Male

DRUGS (4)
  1. DANAPAROID SODIUM [Suspect]
     Dosage: 2500 ANTI_XA
     Dates: start: 20070808, end: 20070810
  2. GABEXATE MESILATE [Concomitant]
  3. MIDAZOLAM HCL [Concomitant]
  4. BUPRENORPHINE HCL [Concomitant]

REACTIONS (1)
  - HEPATITIS FULMINANT [None]
